FAERS Safety Report 7340955-9 (Version None)
Quarter: 2011Q1

REPORT INFORMATION
  Report Type: 
  Country: None (occurrence: None)
  Receive Date: 20110228
  Receipt Date: 20110214
  Transmission Date: 20110831
  Serious: Yes (Hospitalization)
  Sender: FDA-Public Use
  Company Number: CIO11003587

PATIENT
  Age: 61 Year
  Sex: Male

DRUGS (2)
  1. VAPORUB, REGULAR SCENT UNKNOWN, TOPICAL [Suspect]
     Dosage: TOPICAL
     Route: 061
  2. VAPORUB, REGULAR SCENT (CAMPHOR 143.07 MG, CEDAR LEAF OIL 20.4 MG, EUC [Suspect]
     Indication: SINUS DISORDER
     Dosage: INTRANASAL
     Route: 045

REACTIONS (7)
  - LOWER RESPIRATORY TRACT INFLAMMATION [None]
  - CHEST X-RAY ABNORMAL [None]
  - BLOOD PRESSURE INCREASED [None]
  - PNEUMONIA LIPOID [None]
  - CRYPTOCOCCOSIS [None]
  - INTERSTITIAL LUNG DISEASE [None]
  - PARANASAL SINUS DISCOMFORT [None]
